FAERS Safety Report 7384139-7 (Version None)
Quarter: 2011Q1

REPORT INFORMATION
  Report Type: 
  Country: None (occurrence: None)
  Receive Date: 20110330
  Receipt Date: 20110323
  Transmission Date: 20110831
  Serious: No
  Sender: FDA-Public Use
  Company Number: A0920389A

PATIENT
  Sex: Female

DRUGS (1)
  1. NEOTIGASON [Suspect]
     Dosage: 10MG SEE DOSAGE TEXT

REACTIONS (1)
  - DRUG EXPOSURE DURING PREGNANCY [None]
